FAERS Safety Report 13350425 (Version 1)
Quarter: 2017Q1

REPORT INFORMATION
  Report Type: Spontaneous
  Country: NL (occurrence: NL)
  Receive Date: 20170320
  Receipt Date: 20170320
  Transmission Date: 20170429
  Serious: Yes (Life-Threatening, Hospitalization)
  Sender: FDA-Public Use
  Company Number: NL-TEVA-750940ACC

PATIENT
  Age: 1 Year
  Sex: Female
  Weight: 10 kg

DRUGS (3)
  1. AMOXICILLINE SUSP ORAL 50MG/ML [Suspect]
     Active Substance: AMOXICILLIN
     Indication: RESPIRATORY TRACT INFECTION
     Dosage: 15 ML DAILY; 3 TIMES DAILY 5 ML
     Route: 048
     Dates: start: 20170224, end: 20170228
  2. FORLAX POEDER VOOR DRANK SACHET 10G [Concomitant]
     Route: 048
  3. SYNAGIS INJVLST 100MG/ML FLACON 0,5ML [Concomitant]
     Route: 048

REACTIONS (4)
  - Rash [Recovered/Resolved]
  - Lymphadenopathy [Recovered/Resolved]
  - Rash generalised [Recovered/Resolved]
  - Skin discolouration [Recovered/Resolved]

NARRATIVE: CASE EVENT DATE: 20170228
